FAERS Safety Report 9963705 (Version 1)
Quarter: 2014Q1

REPORT INFORMATION
  Report Type: Report from Study
  Country: US (occurrence: US)
  Receive Date: 20140305
  Receipt Date: 20140305
  Transmission Date: 20141002
  Serious: No
  Sender: FDA-Public Use
  Company Number: US-ABBVIE-13P-163-1118722-00

PATIENT
  Sex: Male
  Weight: 86.26 kg

DRUGS (6)
  1. HUMIRA [Suspect]
     Indication: PSORIASIS
     Dates: start: 2011, end: 2012
  2. HUMIRA [Suspect]
     Dates: start: 201302
  3. METFORMIN [Concomitant]
     Indication: DIABETES MELLITUS
  4. CITALOPRAM [Concomitant]
     Indication: SEDATIVE THERAPY
  5. SIMVASTATIN [Concomitant]
     Indication: BLOOD CHOLESTEROL
  6. LISINOPRIL [Concomitant]
     Indication: BLOOD PRESSURE ABNORMAL

REACTIONS (2)
  - Psoriasis [Unknown]
  - Psoriasis [Unknown]
